FAERS Safety Report 7556944-5 (Version None)
Quarter: 2011Q2

REPORT INFORMATION
  Report Type: 
  Country: None (occurrence: None)
  Receive Date: 20110620
  Receipt Date: 20110607
  Transmission Date: 20111010
  Serious: Yes (Life-Threatening, Hospitalization)
  Sender: FDA-Public Use
  Company Number: US-ROCHE-695788

PATIENT
  Sex: Male

DRUGS (3)
  1. DOCETAXEL [Suspect]
     Indication: HEAD AND NECK CANCER
     Dosage: FREQUENCY: OVER 1 HOUR, DAY 1. CYCLE= 21 DAYS. LAST DOSE PRIOR TO SAE ON 01 MARCH 2010.
     Route: 042
     Dates: start: 20100301
  2. BEVACIZUMAB [Suspect]
     Indication: HEAD AND NECK CANCER
     Dosage: FREQUENCY: OVER 30-90 MINUTES, DAY 1.  CYCLE: 21 DAYS. LAST DOSE PRIOR TO SAE ON 01 MARCH 2010.
     Route: 042
     Dates: start: 20100301
  3. CISPLATIN [Suspect]
     Indication: HEAD AND NECK CANCER
     Dosage: FREQUENCY: OVER 1-2 HOURS, DAY 1. CYCLE = 21 DAYS. LAST DOSE PRIOR TO SAE ON 01 MARCH 2010.
     Route: 042
     Dates: start: 20100301

REACTIONS (8)
  - WHITE BLOOD CELL COUNT DECREASED [None]
  - FEBRILE NEUTROPENIA [None]
  - DEHYDRATION [None]
  - DYSPHAGIA [None]
  - DECREASED APPETITE [None]
  - ORAL PAIN [None]
  - NEUTROPHIL COUNT DECREASED [None]
  - STOMATITIS [None]
